FAERS Safety Report 8567763-5 (Version None)
Quarter: 2012Q3

REPORT INFORMATION
  Report Type: 
  Country: None (occurrence: None)
  Receive Date: 20120803
  Receipt Date: 20120727
  Transmission Date: 20120928
  Serious: Yes (Hospitalization)
  Sender: FDA-Public Use
  Company Number: JP-009507513-1207JPN012651

PATIENT

DRUGS (14)
  1. MERISLON [Concomitant]
     Route: 048
  2. CALBLOCK [Concomitant]
     Route: 048
  3. TALION (BEPOTASTINE BESYLATE) [Concomitant]
     Route: 048
     Dates: start: 20120518
  4. GLUFAST [Concomitant]
     Route: 048
     Dates: end: 20120517
  5. LOXONIN [Concomitant]
     Dosage: 60MG/DAY AS NEEDED
     Route: 048
     Dates: start: 20120516
  6. LANSOPRAZOLE [Concomitant]
     Indication: PROPHYLAXIS AGAINST GASTROINTESTINAL ULCER
     Route: 048
     Dates: start: 20120516
  7. GLUFAST [Concomitant]
     Route: 048
     Dates: start: 20120517
  8. PEG-INTRON [Suspect]
     Dosage: 0.5MCG/KG/WEEK
     Route: 058
     Dates: start: 20120607, end: 20120607
  9. REBETOL [Suspect]
     Indication: HEPATITIS C
     Route: 048
     Dates: start: 20120516
  10. PEG-INTRON [Suspect]
     Indication: HEPATITIS C
     Dosage: 1.2MCG/KG/WEEK
     Route: 058
     Dates: start: 20120516, end: 20120530
  11. PEG-INTRON [Suspect]
     Dosage: 1.0MCG/KG/WEEK
     Route: 058
     Dates: start: 20120614
  12. TELAVIC [Suspect]
     Indication: HEPATITIS C
     Route: 048
     Dates: start: 20120516
  13. METHADERM [Concomitant]
     Dosage: AS NEEDED
     Route: 062
     Dates: start: 20120518
  14. [THERAPY UNSPECIFIED] [Concomitant]
     Dosage: AS NEEDED
     Route: 062
     Dates: start: 20120518

REACTIONS (1)
  - DECREASED APPETITE [None]
